FAERS Safety Report 23102986 (Version 1)
Quarter: 2023Q4

REPORT INFORMATION
  Report Type: Spontaneous
  Country: AU (occurrence: AU)
  Receive Date: 20231025
  Receipt Date: 20231025
  Transmission Date: 20240109
  Serious: Yes (Life-Threatening, Hospitalization, Other)
  Sender: FDA-Public Use
  Company Number: AU-MYLANLABS-2023M1095578

PATIENT
  Age: 34 Year
  Sex: Male

DRUGS (2)
  1. CLOZARIL [Suspect]
     Active Substance: CLOZAPINE
     Indication: Schizophrenia
     Dosage: 500 MILLIGRAM
     Route: 048
     Dates: start: 20070403, end: 20230905
  2. CLOZARIL [Suspect]
     Active Substance: CLOZAPINE
     Dosage: 500 MILLIGRAM
     Route: 048
     Dates: start: 20230914

REACTIONS (6)
  - Agranulocytosis [Unknown]
  - Schizophrenia [Unknown]
  - Neutropenia [Recovered/Resolved]
  - Influenza [Recovering/Resolving]
  - Leukopenia [Recovering/Resolving]
  - Therapy interrupted [Unknown]

NARRATIVE: CASE EVENT DATE: 20230904
